FAERS Safety Report 6124702-4 (Version None)
Quarter: 2009Q1

REPORT INFORMATION
  Report Type: 
  Country: None (occurrence: None)
  Receive Date: 20090319
  Receipt Date: 20090311
  Transmission Date: 20090719
  Serious: Yes (Other)
  Sender: FDA-Public Use
  Company Number: PHHY2009JP09078

PATIENT
  Age: 55 Year
  Sex: Female

DRUGS (4)
  1. ZOMETA [Suspect]
     Indication: METASTASES TO BONE
     Dosage: UNK
     Route: 042
     Dates: start: 20070101
  2. ANASTROZOLE [Concomitant]
     Indication: BREAST CANCER
     Dosage: UNK
     Route: 048
     Dates: start: 20070101
  3. PACLITAXEL [Concomitant]
     Route: 042
  4. TOREMIFENE [Concomitant]
     Route: 048

REACTIONS (7)
  - CONDITION AGGRAVATED [None]
  - HYPERCALCAEMIA [None]
  - METASTASES TO BONE [None]
  - METASTASES TO LIVER [None]
  - OSTEONECROSIS [None]
  - PATHOLOGICAL FRACTURE [None]
  - PYREXIA [None]
